FAERS Safety Report 8793685 (Version 4)
Quarter: 2012Q4

REPORT INFORMATION
  Report Type: 
  Country: DK (occurrence: DK)
  Receive Date: 20120918
  Receipt Date: 20121218
  Transmission Date: 20130627
  Serious: Yes (Other)
  Sender: FDA-Public Use
  Company Number: DK-ROCHE-1128624

PATIENT
  Age: 66 Year
  Sex: Male

DRUGS (2)
  1. LUCENTIS [Suspect]
     Indication: RETINAL VEIN OCCLUSION
     Route: 050
     Dates: start: 20120514
  2. LUCENTIS [Suspect]
     Route: 050
     Dates: start: 20120904

REACTIONS (2)
  - Endophthalmitis [Unknown]
  - Visual acuity reduced [Unknown]
